FAERS Safety Report 6096022-8 (Version None)
Quarter: 2009Q1

REPORT INFORMATION
  Report Type: 
  Country: None (occurrence: None)
  Receive Date: 20090227
  Receipt Date: 20080811
  Transmission Date: 20090719
  Serious: No
  Sender: FDA-Public Use
  Company Number: A0742005A

PATIENT
  Age: 40 Year
  Sex: Male

DRUGS (5)
  1. LAMOTRIGINE [Suspect]
     Indication: BIPOLAR DISORDER
     Dosage: 25MG VARIABLE DOSE
     Route: 048
     Dates: start: 20080807
  2. CYMBALTA [Concomitant]
  3. LISINOPRIL [Concomitant]
  4. VICODIN [Concomitant]
  5. PROTONIX [Concomitant]

REACTIONS (2)
  - CHILLS [None]
  - HYPERHIDROSIS [None]
